FAERS Safety Report 17360733 (Version 1)
Quarter: 2020Q1

REPORT INFORMATION
  Report Type: Report from Study
  Country: US (occurrence: US)
  Receive Date: 20200203
  Receipt Date: 20200203
  Transmission Date: 20200409
  Serious: Yes (Hospitalization, Other)
  Sender: FDA-Public Use
  Company Number: US-ROCHE-1739688

PATIENT
  Age: 61 Year
  Sex: Female
  Weight: 88.5 kg

DRUGS (17)
  1. ZOFRAN [Concomitant]
     Active Substance: ONDANSETRON HYDROCHLORIDE
  2. POLYETHYLENE GLYCOL [Concomitant]
     Active Substance: POLYETHYLENE GLYCOLS
  3. IMODIUM [Concomitant]
     Active Substance: LOPERAMIDE HYDROCHLORIDE
  4. LISINOPRIL. [Concomitant]
     Active Substance: LISINOPRIL
  5. KEPPRA [Concomitant]
     Active Substance: LEVETIRACETAM
  6. CLARITIN [Concomitant]
     Active Substance: LORATADINE
  7. BEVACIZUMAB. [Suspect]
     Active Substance: BEVACIZUMAB
     Indication: GLIOBLASTOMA
     Route: 042
     Dates: start: 20130521
  8. TYLENOL [Concomitant]
     Active Substance: ACETAMINOPHEN
  9. BEVACIZUMAB. [Suspect]
     Active Substance: BEVACIZUMAB
     Dosage: MAINTENANCE THERAPY?DATE OF MOST RECENT DOSE RECEIVED: 23/JAN/2016
     Route: 042
     Dates: start: 20150121
  10. MEROPENEM. [Concomitant]
     Active Substance: MEROPENEM
  11. XANAX [Concomitant]
     Active Substance: ALPRAZOLAM
  12. NYSTATIN. [Concomitant]
     Active Substance: NYSTATIN
  13. AMLODIPINE [Concomitant]
     Active Substance: AMLODIPINE BESYLATE
  14. MAGNESIUM CITRATE. [Concomitant]
     Active Substance: MAGNESIUM CITRATE
  15. PROZAC [Concomitant]
     Active Substance: FLUOXETINE HYDROCHLORIDE
  16. TEMODAR [Concomitant]
     Active Substance: TEMOZOLOMIDE
  17. NORVASC [Concomitant]
     Active Substance: AMLODIPINE BESYLATE

REACTIONS (10)
  - Platelet count decreased [Recovered/Resolved]
  - Hypertension [Recovered/Resolved]
  - Viral sepsis [Recovered/Resolved]
  - Cataract [Unknown]
  - Fatigue [Unknown]
  - Thrombocytopenia [Unknown]
  - Neutrophil count decreased [Unknown]
  - White blood cell count decreased [Unknown]
  - Proteinuria [Recovered/Resolved]
  - Lymphocyte count decreased [Unknown]

NARRATIVE: CASE EVENT DATE: 20130703
